FAERS Safety Report 18728643 (Version 1)
Quarter: 2021Q1

REPORT INFORMATION
  Report Type: Spontaneous
  Country: US (occurrence: US)
  Receive Date: 20210112
  Receipt Date: 20210112
  Transmission Date: 20210419
  Serious: Yes (Death, Hospitalization, Other)
  Sender: FDA-Public Use
  Company Number: US-SA-2021SA006650

PATIENT
  Sex: Female

DRUGS (1)
  1. RENVELA [Suspect]
     Active Substance: SEVELAMER CARBONATE
     Indication: BLOOD PHOSPHORUS
     Dosage: UNK

REACTIONS (2)
  - Renal failure [Fatal]
  - Hospitalisation [Unknown]

NARRATIVE: CASE EVENT DATE: 202001
